FAERS Safety Report 16205953 (Version 1)
Quarter: 2019Q2

REPORT INFORMATION
  Report Type: Report from Study
  Country: None (occurrence: CH)
  Receive Date: 20190417
  Receipt Date: 20190417
  Transmission Date: 20190711
  Serious: Yes (Hospitalization)
  Sender: FDA-Public Use
  Company Number: CH-ABBVIE-19S-151-2745847-00

PATIENT
  Age: 82 Year
  Sex: Female

DRUGS (3)
  1. DUODOPA [Suspect]
     Active Substance: CARBIDOPA\LEVODOPA
     Dosage: MORNING DOSE 7.5ML, CONTINUOUS RATE DAY 3.5ML/H, EXTRA DOSE 2ML, 16 H THERAPY
     Route: 050
     Dates: start: 20160824, end: 20180516
  2. DUODOPA [Suspect]
     Active Substance: CARBIDOPA\LEVODOPA
     Dosage: MORNING DOSE 4.5ML, CONTINUOUS RATE DAY 3.9ML/H, EXTRA DOSE 2ML, 16 H THERAPY
     Route: 050
     Dates: start: 20180516
  3. DUODOPA [Suspect]
     Active Substance: CARBIDOPA\LEVODOPA
     Indication: PARKINSON^S DISEASE
     Route: 050
     Dates: start: 20160127, end: 20160824

REACTIONS (2)
  - General physical health deterioration [Unknown]
  - Device use error [Recovered/Resolved]

NARRATIVE: CASE EVENT DATE: 20190412
